FAERS Safety Report 13980654 (Version 2)
Quarter: 2018Q1

REPORT INFORMATION
  Report Type: Report from Study
  Country: None (occurrence: US)
  Receive Date: 20170918
  Receipt Date: 20180202
  Transmission Date: 20180508
  Serious: Yes (Other)
  Sender: FDA-Public Use
  Company Number: US-ABBVIE-17K-163-2100198-00

PATIENT
  Sex: Female

DRUGS (1)
  1. HUMIRA [Suspect]
     Active Substance: ADALIMUMAB
     Indication: RHEUMATOID ARTHRITIS
     Route: 058

REACTIONS (9)
  - Arthralgia [Unknown]
  - Hand fracture [Recovering/Resolving]
  - Limb injury [Unknown]
  - Breast calcifications [Unknown]
  - Fall [Recovering/Resolving]
  - Contusion [Unknown]
  - Mammogram abnormal [Unknown]
  - Eye contusion [Unknown]
  - Post procedural haemorrhage [Unknown]
